FAERS Safety Report 4384817-8 (Version None)
Quarter: 2004Q2

REPORT INFORMATION
  Report Type: 
  Country: None (occurrence: None)
  Receive Date: 20040625
  Receipt Date: 20040604
  Transmission Date: 20050107
  Serious: No
  Sender: FDA-Public Use
  Company Number: BE-BRISTOL-MYERS SQUIBB COMPANY-12607073

PATIENT
  Age: 71 Year
  Sex: Male
  Weight: 50 kg

DRUGS (7)
  1. CEFEPIME HCL [Suspect]
     Indication: PNEUMONIA
     Route: 042
     Dates: start: 20040507, end: 20040514
  2. DIPHANTOINE [Interacting]
     Indication: EPILEPSY
     Route: 048
  3. LOGASTRIC [Concomitant]
     Route: 042
     Dates: start: 20040505
  4. AMLOR [Concomitant]
     Route: 048
  5. CIPRAMIL [Concomitant]
     Route: 048
  6. ASAFLOW [Concomitant]
     Route: 048
  7. TAZOCIN [Concomitant]
     Indication: PNEUMONIA

REACTIONS (3)
  - ANTICONVULSANT DRUG LEVEL DECREASED [None]
  - DRUG INTERACTION [None]
  - DRUG LEVEL FLUCTUATING [None]
